FAERS Safety Report 17636916 (Version 1)
Quarter: 2020Q2

REPORT INFORMATION
  Report Type: Spontaneous
  Country: US (occurrence: US)
  Receive Date: 20200406
  Receipt Date: 20200406
  Transmission Date: 20200713
  Serious: No
  Sender: FDA-Public Use
  Company Number: None

PATIENT
  Sex: Female
  Weight: 68.04 kg

DRUGS (2)
  1. CELECOXIB 100MG [Suspect]
     Active Substance: CELECOXIB
     Indication: ARTHRITIS
     Route: 048
     Dates: start: 20200320
  2. CELECOXIB 100MG [Suspect]
     Active Substance: CELECOXIB
     Indication: OEDEMA PERIPHERAL
     Route: 048
     Dates: start: 20200320

REACTIONS (2)
  - Product physical issue [None]
  - Hyperhidrosis [None]
